FAERS Safety Report 4793736-4 (Version None)
Quarter: 2005Q4

REPORT INFORMATION
  Report Type: 
  Country: None (occurrence: None)
  Receive Date: 20051006
  Receipt Date: 20050926
  Transmission Date: 20060501
  Serious: Yes (Other)
  Sender: FDA-Public Use
  Company Number: 2005134031

PATIENT
  Age: 49 Year
  Sex: Female
  Weight: 83.9154 kg

DRUGS (4)
  1. LIPITOR [Suspect]
     Indication: BLOOD CHOLESTEROL INCREASED
     Dates: start: 20050101
  2. CELEBREX [Suspect]
     Indication: JOINT ARTHROPLASTY
     Dates: start: 20050901
  3. CELEBREX [Suspect]
     Indication: LIMB OPERATION
     Dates: start: 20050901
  4. PREMARIN [Concomitant]

REACTIONS (1)
  - HYPOTHYROIDISM [None]
